FAERS Safety Report 14513758 (Version 1)
Quarter: 2018Q1

REPORT INFORMATION
  Report Type: Spontaneous
  Country: US (occurrence: US)
  Receive Date: 20180209
  Receipt Date: 20180209
  Transmission Date: 20180509
  Serious: No
  Sender: FDA-Public Use
  Company Number: US-ALLERGAN-1768191US

PATIENT
  Age: 70 Year
  Sex: Male

DRUGS (3)
  1. XIIDRA [Suspect]
     Active Substance: LIFITEGRAST
     Indication: DRY EYE
     Dosage: UNK
     Route: 065
     Dates: start: 20171107, end: 201711
  2. RESTASIS [Suspect]
     Active Substance: CYCLOSPORINE
     Indication: DRY EYE
  3. RESTASIS [Suspect]
     Active Substance: CYCLOSPORINE
     Indication: PHOTOPHOBIA
     Dosage: UNK
     Route: 047
     Dates: start: 201709, end: 201711

REACTIONS (6)
  - Intentional product misuse [Unknown]
  - Vocal cord disorder [Unknown]
  - Feeling abnormal [Not Recovered/Not Resolved]
  - Dizziness [Not Recovered/Not Resolved]
  - Vertigo [Not Recovered/Not Resolved]
  - Off label use [Unknown]

NARRATIVE: CASE EVENT DATE: 201711
